FAERS Safety Report 18566512 (Version 4)
Quarter: 2021Q3

REPORT INFORMATION
  Report Type: Report from Study
  Country: US (occurrence: US)
  Receive Date: 20201201
  Receipt Date: 20210929
  Transmission Date: 20211014
  Serious: Yes (Hospitalization, Other)
  Sender: FDA-Public Use
  Company Number: US-TAKEDA-US201912569

PATIENT
  Age: 53 Year
  Sex: Female

DRUGS (2)
  1. COVID?19 VACCINE NOS. [Suspect]
     Active Substance: COVID-19 VACCINE NOS
     Indication: PRODUCT USED FOR UNKNOWN INDICATION
     Dosage: UNK
     Route: 065
  2. GAMMAGARD LIQUID [Suspect]
     Active Substance: HUMAN IMMUNOGLOBULIN G
     Indication: PRIMARY IMMUNODEFICIENCY SYNDROME
     Dosage: UNK
     Route: 042

REACTIONS (8)
  - Adverse drug reaction [Unknown]
  - Joint arthroplasty [Unknown]
  - Spinal operation [Unknown]
  - Foot fracture [Unknown]
  - Back disorder [Unknown]
  - Wrist fracture [Unknown]
  - Pelvic pain [Unknown]
  - Fall [Unknown]

NARRATIVE: CASE EVENT DATE: 202007
